FAERS Safety Report 9753762 (Version 2)
Quarter: 2013Q4

REPORT INFORMATION
  Report Type: Spontaneous
  Country: US (occurrence: US)
  Receive Date: 20131213
  Receipt Date: 20131213
  Transmission Date: 20140711
  Serious: No
  Sender: FDA-Public Use
  Company Number: US-GILEAD-2010-0026520

PATIENT
  Sex: Male
  Weight: 144.24 kg

DRUGS (23)
  1. LETAIRIS [Suspect]
     Indication: PULMONARY ARTERIAL HYPERTENSION
     Route: 048
     Dates: start: 20091221
  2. LETAIRIS [Suspect]
     Route: 048
     Dates: start: 20080630, end: 20091220
  3. REVATIO [Concomitant]
  4. OXYGEN [Concomitant]
  5. LASIX [Concomitant]
  6. CARDIZEM [Concomitant]
  7. TOPROL XL [Concomitant]
  8. TYLENOL 8 HOUR [Concomitant]
  9. MIRAPEX [Concomitant]
  10. ALBUTEROL [Concomitant]
  11. MUCINEX [Concomitant]
  12. FLUTICASONE [Concomitant]
  13. ASMANEX [Concomitant]
  14. ASTELIN [Concomitant]
  15. SINGULAIR [Concomitant]
  16. ZYRTEC [Concomitant]
  17. GLYBURIDE [Concomitant]
  18. ALLOPURINOL [Concomitant]
  19. METROGEL TOPICAL 1% GEL [Concomitant]
  20. VOLTAREN 1% GEL [Concomitant]
  21. COLACE [Concomitant]
  22. DETROL LA [Concomitant]
  23. CITRACAL + D [Concomitant]

REACTIONS (1)
  - Fluid retention [Unknown]
